FAERS Safety Report 9632242 (Version 1)
Quarter: 2013Q4

REPORT INFORMATION
  Report Type: Spontaneous
  Country: US (occurrence: None)
  Receive Date: 20131018
  Receipt Date: 20131018
  Transmission Date: 20140711
  Serious: No
  Sender: FDA-Public Use
  Company Number: None

PATIENT
  Age: 72 Year
  Sex: Female

DRUGS (1)
  1. CARIMUNE NF [Suspect]
     Indication: IMMUNOGLOBULINS DECREASED
     Route: 042

REACTIONS (2)
  - Intercepted medication error [None]
  - Product quality issue [None]
